FAERS Safety Report 8809582 (Version 3)
Quarter: 2013Q4

REPORT INFORMATION
  Report Type: Report from Study
  Country: JP (occurrence: JP)
  Receive Date: 20120926
  Receipt Date: 20131001
  Transmission Date: 20140711
  Serious: Yes (Other)
  Sender: FDA-Public Use
  Company Number: JP-VERTEX PHARMACEUTICAL INC.-AE-2012-011912

PATIENT
  Age: 52 Year
  Sex: Male

DRUGS (8)
  1. VX-950 (TELAPREVIR) [Suspect]
     Indication: CHRONIC HEPATITIS C
     Dosage: 2250 MG, QD
     Route: 048
     Dates: start: 20120615, end: 20120706
  2. VX-950 (TELAPREVIR) [Suspect]
     Dosage: 1500 MG, QD
     Route: 048
     Dates: start: 20120706, end: 20120713
  3. RIBAVIRIN [Suspect]
     Indication: CHRONIC HEPATITIS C
     Dosage: 800 MG, UNK
     Route: 048
     Dates: start: 20120615, end: 20120706
  4. RIBAVIRIN [Suspect]
     Dosage: 400 MG, UNK
     Route: 048
     Dates: start: 20120706, end: 20120713
  5. PEGINTERFERON ALFA-2B [Suspect]
     Indication: CHRONIC HEPATITIS C
     Dosage: 100 ?G, QW
     Route: 058
     Dates: start: 20120615, end: 20120713
  6. JANUVIA [Concomitant]
     Dosage: 50 MG, UNK
     Route: 048
  7. BASEN [Concomitant]
     Dosage: 0.6 MG, UNK
     Route: 048
  8. UNISIA [Concomitant]
     Dosage: 8 MG/DAY, 5MG/DAY
     Route: 048

REACTIONS (2)
  - Malaise [Recovered/Resolved]
  - Malaise [Recovered/Resolved]
